FAERS Safety Report 24569057 (Version 2)
Quarter: 2024Q4

REPORT INFORMATION
  Report Type: Spontaneous
  Country: CN (occurrence: CN)
  Receive Date: 20241031
  Receipt Date: 20241106
  Transmission Date: 20250115
  Serious: Yes (Death, Life-Threatening, Hospitalization)
  Sender: PFIZER
  Company Number: CN-MLMSERVICE-20241021-PI232425-00202-1

PATIENT
  Age: 13 Day
  Sex: Male
  Weight: 3.56 kg

DRUGS (2)
  1. LINEZOLID [Suspect]
     Active Substance: LINEZOLID
     Indication: Staphylococcal infection
     Dosage: LINEZOLID 0.035 G Q8H, INTRAVENOUS INFUSION RATE 15 ML/H
     Route: 042
  2. VITAMIN AD [Concomitant]
     Active Substance: PETROLATUM
     Dosage: 1500 IU:500 IU ONCE DAILY

REACTIONS (9)
  - Cardiac arrest neonatal [Fatal]
  - Neonatal respiratory arrest [Fatal]
  - Lactic acidosis [Fatal]
  - Condition aggravated [Fatal]
  - Hypoxic ischaemic encephalopathy neonatal [Fatal]
  - Necrotising enterocolitis neonatal [Fatal]
  - Neonatal multi-organ failure [Fatal]
  - Myocardial injury [Fatal]
  - Neonatal respiratory acidosis [Fatal]
